FAERS Safety Report 14909660 (Version 8)
Quarter: 2020Q3

REPORT INFORMATION
  Report Type: Report from Study
  Country: US (occurrence: US)
  Receive Date: 20180517
  Receipt Date: 20200807
  Transmission Date: 20201102
  Serious: Yes (Hospitalization)
  Sender: FDA-Public Use
  Company Number: PHEH2018US019015

PATIENT
  Sex: Male

DRUGS (4)
  1. AFINITOR DISPERZ [Suspect]
     Active Substance: EVEROLIMUS
     Indication: ASTROCYTOMA, LOW GRADE
     Dosage: 3 MG, QD
     Route: 048
     Dates: start: 20180309, end: 20181226
  2. AFINITOR DISPERZ [Suspect]
     Active Substance: EVEROLIMUS
     Dosage: 5 MG, QD
     Route: 048
     Dates: start: 20180309
  3. AFINITOR DISPERZ [Suspect]
     Active Substance: EVEROLIMUS
     Dosage: 5 MG, UNK
     Route: 048
  4. AFINITOR DISPERZ [Suspect]
     Active Substance: EVEROLIMUS
     Dosage: 2.5 MG, UNK
     Route: 048

REACTIONS (10)
  - Illness [Not Recovered/Not Resolved]
  - Skin haemorrhage [Recovered/Resolved]
  - Epilepsy [Unknown]
  - Influenza [Unknown]
  - Pyrexia [Unknown]
  - Hyperaesthesia teeth [Not Recovered/Not Resolved]
  - Drug level decreased [Not Recovered/Not Resolved]
  - Oral herpes [Not Recovered/Not Resolved]
  - Rhabdomyoma [Not Recovered/Not Resolved]
  - Skin lesion [Recovering/Resolving]
